FAERS Safety Report 7759124-3 (Version None)
Quarter: 2011Q3

REPORT INFORMATION
  Report Type: 
  Country: None (occurrence: None)
  Receive Date: 20110919
  Receipt Date: 20110912
  Transmission Date: 20111222
  Serious: Yes (Hospitalization)
  Sender: FDA-Public Use
  Company Number: PHHY2011JP77798

PATIENT
  Age: 86 Year
  Sex: Female

DRUGS (7)
  1. LEVOTHYROXINE SODIUM [Concomitant]
     Dosage: UNK UKN, UNK
     Route: 048
  2. RASILEZ [Concomitant]
     Dosage: UNK UKN, UNK
     Route: 048
  3. AMLODIPINE [Concomitant]
     Dosage: UNK UKN, UNK
     Route: 048
  4. CARVEDILOL [Concomitant]
     Dosage: UNK UKN, UNK
     Route: 048
  5. LENDORMIN [Concomitant]
     Dosage: UNK UKN, UNK
     Route: 048
  6. EXELON [Suspect]
     Indication: DEMENTIA ALZHEIMER'S TYPE
     Dosage: 4.5 MG DAILY
     Route: 062
     Dates: end: 20110823
  7. WARFARIN SODIUM [Concomitant]
     Dosage: UNK UKN, UNK
     Route: 048

REACTIONS (7)
  - HYPOTHYROIDISM [None]
  - PYREXIA [None]
  - RENAL IMPAIRMENT [None]
  - CARDIAC FAILURE [None]
  - DEPRESSED LEVEL OF CONSCIOUSNESS [None]
  - APATHY [None]
  - MYXOEDEMA [None]
